FAERS Safety Report 9253769 (Version 5)
Quarter: 2015Q4

REPORT INFORMATION
  Report Type: Spontaneous
  Country: US (occurrence: US)
  Receive Date: 20130425
  Receipt Date: 20151020
  Transmission Date: 20160305
  Serious: Yes (Hospitalization)
  Sender: FDA-Public Use
  Company Number: US-PFIZER INC-2013128481

PATIENT
  Age: 61 Year
  Sex: Female

DRUGS (5)
  1. ZOLOFT [Suspect]
     Active Substance: SERTRALINE HYDROCHLORIDE
     Indication: DEPRESSION
     Dosage: 50 MG, 1X/DAY
     Route: 048
     Dates: start: 20110429, end: 201207
  2. PREMARIN [Concomitant]
     Active Substance: ESTROGENS, CONJUGATED
     Dosage: 1.25 MG, 1X/DAY (QD)
  3. ZOLOFT [Suspect]
     Active Substance: SERTRALINE HYDROCHLORIDE
     Indication: MIGRAINE
     Dosage: 50 MG, 1X/DAY
     Route: 048
     Dates: start: 20120801, end: 20120829
  4. METOPROLOL [Concomitant]
     Active Substance: METOPROLOL
     Dosage: 25 MG, 1X/DAY (QD)
  5. PREDNISONE. [Concomitant]
     Active Substance: PREDNISONE
     Dosage: 10 MG, 1X/DAY (QD)

REACTIONS (4)
  - Dizziness [Recovered/Resolved]
  - Drug hypersensitivity [Recovered/Resolved]
  - Nausea [Recovered/Resolved]
  - Vertigo [Recovered/Resolved]

NARRATIVE: CASE EVENT DATE: 201208
